FAERS Safety Report 7235746-3 (Version None)
Quarter: 2011Q1

REPORT INFORMATION
  Report Type: 
  Country: None (occurrence: None)
  Receive Date: 20110111
  Receipt Date: 20110103
  Transmission Date: 20110831
  Serious: Yes (Other)
  Sender: FDA-Public Use
  Company Number: 2010MA005377

PATIENT
  Age: 25 Year
  Sex: Female

DRUGS (7)
  1. AMITRIPTYLINE HCL [Concomitant]
  2. SERTRALINE HYDROCHLORIDE [Concomitant]
  3. LOCORTEN VIOFORM [Concomitant]
  4. MOMETASONE FUROATE [Concomitant]
  5. SERTRALINE HYDROCHLORIDE [Suspect]
     Dates: start: 20101118
  6. FLOXACILLIN SODIUM [Concomitant]
  7. ESCITALOPRAM [Concomitant]

REACTIONS (1)
  - RASH [None]
